FAERS Safety Report 4779920-4 (Version None)
Quarter: 2005Q3

REPORT INFORMATION
  Report Type: 
  Country: None (occurrence: None)
  Receive Date: 20050914
  Receipt Date: 20050430
  Transmission Date: 20060218
  Serious: Yes (Hospitalization)
  Sender: FDA-Public Use
  Company Number: 163-20785-05050044

PATIENT
  Age: 61 Year
  Sex: Male

DRUGS (21)
  1. THALOMID [Suspect]
     Indication: MULTIPLE MYELOMA
     Dosage: DAILY, ORAL
     Route: 048
     Dates: start: 20040717, end: 20040101
  2. THALOMID [Suspect]
     Indication: MULTIPLE MYELOMA
     Dosage: DAILY, ORAL
     Route: 048
     Dates: start: 20041103, end: 20041126
  3. THALOMID [Suspect]
     Indication: MULTIPLE MYELOMA
     Dosage: DAILY, ORAL
     Route: 048
     Dates: start: 20040818
  4. DEXAMETHASONE [Suspect]
     Indication: MULTIPLE MYELOMA
     Dosage: DAILY, ORAL; DAILY, ORAL; DAILY
     Route: 048
     Dates: start: 20040717, end: 20040101
  5. DEXAMETHASONE [Suspect]
     Indication: MULTIPLE MYELOMA
     Dosage: DAILY, ORAL; DAILY, ORAL; DAILY
     Route: 048
     Dates: start: 20041207, end: 20041210
  6. DEXAMETHASONE [Suspect]
     Indication: MULTIPLE MYELOMA
     Dosage: DAILY, ORAL; DAILY, ORAL; DAILY
     Route: 048
     Dates: start: 20040818
  7. MELPHALAN (MELPHALAN) [Suspect]
     Indication: MULTIPLE MYELOMA
     Dosage: 400 MG, INTRAVENOUS;  INTRAVENOUS
     Route: 042
     Dates: start: 20040901, end: 20040901
  8. MELPHALAN (MELPHALAN) [Suspect]
     Indication: MULTIPLE MYELOMA
     Dosage: 400 MG, INTRAVENOUS;  INTRAVENOUS
     Route: 042
     Dates: start: 20041208, end: 20041208
  9. BORTEZOMIB (BORTEZOMIB) [Suspect]
     Indication: MULTIPLE MYELOMA
     Dates: start: 20040717
  10. BORTEZOMIB (BORTEZOMIB) [Suspect]
     Indication: MULTIPLE MYELOMA
     Dates: start: 20040818
  11. CISPLATIN [Suspect]
     Indication: MULTIPLE MYELOMA
     Dates: start: 20040717
  12. CISPLATIN [Suspect]
     Indication: MULTIPLE MYELOMA
     Dates: start: 20040818
  13. ADRIAMYCIN PFS [Suspect]
     Indication: MULTIPLE MYELOMA
     Dates: start: 20040717
  14. ADRIAMYCIN PFS [Suspect]
     Indication: MULTIPLE MYELOMA
     Dates: start: 20040818
  15. CYCLOPHOSPHAMIDE [Suspect]
     Indication: MULTIPLE MYELOMA
     Dates: start: 20040717
  16. CYCLOPHOSPHAMIDE [Suspect]
     Indication: MULTIPLE MYELOMA
     Dates: start: 20040818
  17. ETOPOSIDE [Suspect]
     Indication: MULTIPLE MYELOMA
     Dates: start: 20040717
  18. ETOPOSIDE [Suspect]
     Indication: MULTIPLE MYELOMA
     Dates: start: 20040818
  19. ACYCLOVIR [Concomitant]
  20. PRILOSEC [Concomitant]
  21. LIPITOR [Concomitant]

REACTIONS (6)
  - ANAEMIA [None]
  - ATRIAL FIBRILLATION [None]
  - BACTERAEMIA [None]
  - DIZZINESS [None]
  - HYPOTENSION [None]
  - STAPHYLOCOCCAL INFECTION [None]
